FAERS Safety Report 8850969 (Version 1)
Quarter: 2012Q4

REPORT INFORMATION
  Report Type: 
  Country: NL (occurrence: NL)
  Receive Date: 20121019
  Receipt Date: 20121019
  Transmission Date: 20130627
  Serious: Yes (Hospitalization)
  Sender: FDA-Public Use
  Company Number: PHHO2012NL004644

PATIENT
  Age: 51 Year
  Sex: Male
  Weight: 87 kg

DRUGS (3)
  1. MYCOPHENOLIC ACID [Suspect]
     Indication: STEM CELL TRANSPLANT
     Dosage: 2160 mg, UNK
     Route: 048
     Dates: start: 20120125
  2. SANDIMMUN [Suspect]
     Indication: STEM CELL TRANSPLANT
     Dosage: 600 mg, UNK
     Route: 048
     Dates: start: 20120122, end: 20120319
  3. SANDIMMUN [Suspect]
     Dosage: Dose reduced
     Route: 048

REACTIONS (1)
  - Pancytopenia [Recovered/Resolved with Sequelae]
